FAERS Safety Report 13964226 (Version 1)
Quarter: 2017Q3

REPORT INFORMATION
  Report Type: Spontaneous
  Country: IT (occurrence: IT)
  Receive Date: 20170913
  Receipt Date: 20170913
  Transmission Date: 20171128
  Serious: Yes (Hospitalization, Other)
  Sender: FDA-Public Use
  Company Number: IT-VALIDUS PHARMACEUTICALS LLC-IT-2016VAL000768

PATIENT
  Age: 4 Year
  Sex: Male

DRUGS (6)
  1. INSULIN, REGULAR [Suspect]
     Active Substance: INSULIN NOS
     Dosage: UNK
     Route: 058
  2. INSULIN, REGULAR [Suspect]
     Active Substance: INSULIN NOS
     Indication: PRODUCT USED FOR UNKNOWN INDICATION
     Dosage: UNK
     Route: 042
  3. FUROSEMIDE. [Suspect]
     Active Substance: FUROSEMIDE
     Indication: PRODUCT USED FOR UNKNOWN INDICATION
     Dosage: UNK
     Route: 065
  4. VALPROATE SODIUM. [Concomitant]
     Active Substance: VALPROATE SODIUM
     Indication: PRODUCT USED FOR UNKNOWN INDICATION
     Dosage: UNK
  5. GLIBENCLAMIDE [Suspect]
     Active Substance: GLYBURIDE
     Indication: PRODUCT USED FOR UNKNOWN INDICATION
     Dosage: UNK
     Route: 065
  6. PROGESTERONE. [Suspect]
     Active Substance: PROGESTERONE
     Indication: PRODUCT USED FOR UNKNOWN INDICATION
     Route: 065

REACTIONS (12)
  - Hypokalaemia [Recovered/Resolved]
  - Hyperglycaemia [Recovered/Resolved]
  - Intentional product misuse [Recovered/Resolved]
  - Sepsis [Recovered/Resolved]
  - Blood bicarbonate increased [Recovered/Resolved]
  - Developmental delay [Unknown]
  - Nephrocalcinosis [Unknown]
  - Blood pH increased [Recovered/Resolved]
  - Base excess increased [Recovered/Resolved]
  - Hypoglycaemia [Recovered/Resolved]
  - Hirsutism [Recovered/Resolved]
  - Metabolic alkalosis [Recovered/Resolved]
